FAERS Safety Report 21213099 (Version 4)
Quarter: 2023Q1

REPORT INFORMATION
  Report Type: Spontaneous
  Country: US (occurrence: US)
  Receive Date: 20220815
  Receipt Date: 20230310
  Transmission Date: 20230417
  Serious: Yes (Other)
  Sender: FDA-Public Use
  Company Number: US-INCYTE CORPORATION-2022IN007796

PATIENT

DRUGS (2)
  1. JAKAFI [Suspect]
     Active Substance: RUXOLITINIB
     Indication: Myelofibrosis
     Dosage: 10 MILLIGRAM, BID
     Route: 048
     Dates: start: 202209
  2. JAKAFI [Suspect]
     Active Substance: RUXOLITINIB
     Dosage: 10 MILLIGRAM, BID
     Route: 048

REACTIONS (28)
  - Haematological neoplasm [Unknown]
  - Cerebral disorder [Recovering/Resolving]
  - Spinal fracture [Unknown]
  - Cerebral haemorrhage [Unknown]
  - Amnesia [Unknown]
  - Somnolence [Unknown]
  - Hypersensitivity [Unknown]
  - Rhinorrhoea [Unknown]
  - Oedema [Unknown]
  - Body height decreased [Unknown]
  - Liver disorder [Unknown]
  - Aphasia [Unknown]
  - Drooling [Unknown]
  - Abdominal discomfort [Unknown]
  - Road traffic accident [Unknown]
  - Tooth loss [Unknown]
  - Incontinence [Unknown]
  - Dermatitis diaper [Unknown]
  - Blood iron decreased [Unknown]
  - Dairy intolerance [Unknown]
  - Oxygen saturation decreased [Unknown]
  - Irritability [Unknown]
  - Therapeutic response unexpected [Unknown]
  - Asthenia [Unknown]
  - Mobility decreased [Unknown]
  - Product dose omission issue [Unknown]
  - Product availability issue [Unknown]
  - Headache [Unknown]

NARRATIVE: CASE EVENT DATE: 20170101
